FAERS Safety Report 8449331-9 (Version None)
Quarter: 2012Q2

REPORT INFORMATION
  Report Type: 
  Country: None (occurrence: None)
  Receive Date: 20120619
  Receipt Date: 20120606
  Transmission Date: 20120825
  Serious: Yes (Death)
  Sender: FDA-Public Use
  Company Number: US-MYLANLABS-2011S1011658

PATIENT
  Sex: Male

DRUGS (1)
  1. FENTANYL-100 [Suspect]
     Indication: PAIN
     Dates: start: 20090602, end: 20090609

REACTIONS (2)
  - FATIGUE [None]
  - MYOCARDIAL INFARCTION [None]
